FAERS Safety Report 15738744 (Version 4)
Quarter: 2019Q3

REPORT INFORMATION
  Report Type: Report from Study
  Country: TH (occurrence: TH)
  Receive Date: 20181219
  Receipt Date: 20190820
  Transmission Date: 20191004
  Serious: Yes (Death, Hospitalization, Other)
  Sender: FDA-Public Use
  Company Number: TH-TAKEDA-2018MPI009652

PATIENT
  Age: 65 Year
  Sex: Male

DRUGS (3)
  1. BORTEZOMIB. [Suspect]
     Active Substance: BORTEZOMIB
     Dosage: 2.1 MG, QD
     Route: 065
     Dates: start: 20180604, end: 2018
  2. BORTEZOMIB. [Suspect]
     Active Substance: BORTEZOMIB
     Dosage: UNK
     Route: 065
     Dates: start: 20180716, end: 20180806
  3. BORTEZOMIB. [Suspect]
     Active Substance: BORTEZOMIB
     Indication: PLASMA CELL MYELOMA
     Dosage: 2.1 MG, QD
     Route: 065
     Dates: start: 20180604, end: 20181128

REACTIONS (14)
  - Cardiac arrest [Fatal]
  - Taste disorder [Recovering/Resolving]
  - Syncope [Unknown]
  - Hospitalisation [Unknown]
  - Pulmonary oedema [Recovering/Resolving]
  - Asthenia [Recovering/Resolving]
  - Hypoaesthesia [Not Recovered/Not Resolved]
  - Decreased appetite [Recovering/Resolving]
  - Influenza [Recovering/Resolving]
  - Hypotension [Not Recovered/Not Resolved]
  - Weight decreased [Recovering/Resolving]
  - Insomnia [Recovering/Resolving]
  - Vomiting [Recovering/Resolving]
  - Constipation [Recovering/Resolving]

NARRATIVE: CASE EVENT DATE: 20180630
